FAERS Safety Report 9033988 (Version 1)
Quarter: 2013Q1

REPORT INFORMATION
  Report Type: Spontaneous
  Country: US (occurrence: US)
  Receive Date: 20130128
  Receipt Date: 20130128
  Transmission Date: 20140127
  Serious: Yes (Hospitalization, Congenital Anomaly, Other)
  Sender: FDA-Public Use
  Company Number: US-AMGEN-USASP2012061882

PATIENT
  Sex: Female

DRUGS (1)
  1. ENBREL [Suspect]
     Dosage: 50 MG, 2 TIMES/WK
     Route: 064
     Dates: start: 19940912

REACTIONS (4)
  - Fallot^s tetralogy [Recovered/Resolved]
  - Cardiac septal defect [Recovered/Resolved]
  - Congenital arterial malformation [Recovered/Resolved]
  - Umbilical cord abnormality [Recovered/Resolved]
